FAERS Safety Report 4375821-4 (Version None)
Quarter: 2004Q2

REPORT INFORMATION
  Report Type: 
  Country: None (occurrence: None)
  Receive Date: 20040607
  Receipt Date: 20040527
  Transmission Date: 20050107
  Serious: Yes (Disabling)
  Sender: FDA-Public Use
  Company Number: 2004209632DE

PATIENT
  Age: 41 Year
  Sex: Female
  Weight: 42 kg

DRUGS (1)
  1. ZYVOXID 600 MG (LINEZOLID) TABLET [Suspect]
     Indication: PNEUMONIA STAPHYLOCOCCAL
     Dosage: 600 MG, BID, ORAL
     Route: 048
     Dates: start: 20030701, end: 20040226

REACTIONS (2)
  - OPTIC NEUROPATHY [None]
  - POLYNEUROPATHY [None]
